FAERS Safety Report 5756316-X (Version None)
Quarter: 2008Q2

REPORT INFORMATION
  Report Type: 
  Country: None (occurrence: None)
  Receive Date: 20080528
  Receipt Date: 20080528
  Transmission Date: 20081010
  Serious: Yes (Disabling)
  Sender: FDA-Public Use
  Company Number: None

PATIENT
  Age: 90 Year
  Sex: Male
  Weight: 68.9467 kg

DRUGS (3)
  1. LINEZOLID [Suspect]
     Indication: ENTEROCOCCAL INFECTION
     Dosage: 600 MG Q12H IV
     Route: 042
     Dates: start: 20080112, end: 20080118
  2. LINEZOLID [Suspect]
     Indication: UROSEPSIS
     Dosage: 600 MG Q12H IV
     Route: 042
     Dates: start: 20080112, end: 20080118
  3. PIPERACILLIN/TAZOBACTAM  2.25 GM [Suspect]
     Indication: UROSEPSIS
     Dosage: 2.25 GM Q6H
     Dates: start: 20080109, end: 20080116

REACTIONS (2)
  - HAEMATURIA [None]
  - THROMBOCYTOPENIA [None]
